FAERS Safety Report 15370142 (Version 1)
Quarter: 2018Q3

REPORT INFORMATION
  Report Type: Spontaneous
  Country: US (occurrence: US)
  Receive Date: 20180911
  Receipt Date: 20180911
  Transmission Date: 20181010
  Serious: Yes (Other)
  Sender: FDA-Public Use
  Company Number: US-APOTEX-2018AP020484

PATIENT
  Age: 73 Year
  Sex: Male

DRUGS (4)
  1. GABAPENTIN. [Suspect]
     Active Substance: GABAPENTIN
     Indication: ORTHOSTATIC TREMOR
     Dosage: 1200 MG, UNK PER DAY
     Route: 065
  2. PRIMIDONE. [Suspect]
     Active Substance: PRIMIDONE
     Indication: ORTHOSTATIC TREMOR
     Dosage: 75 MG, UNK PER DAY
     Route: 065
  3. CLONAZEPAM. [Suspect]
     Active Substance: CLONAZEPAM
     Indication: ORTHOSTATIC TREMOR
     Dosage: 1 MG, UNK PER DAY
     Route: 065
  4. CARBIDOPA AND LEVODOPA [Suspect]
     Active Substance: CARBIDOPA\LEVODOPA
     Indication: ORTHOSTATIC TREMOR
     Dosage: 0.5 MG, TID
     Route: 065

REACTIONS (1)
  - Drug resistance [Unknown]
